FAERS Safety Report 4825264-1 (Version None)
Quarter: 2005Q4

REPORT INFORMATION
  Report Type: 
  Country: None (occurrence: None)
  Receive Date: 20051110
  Receipt Date: 20051110
  Transmission Date: 20060501
  Serious: No
  Sender: FDA-Public Use
  Company Number: None

PATIENT
  Sex: Male
  Weight: 80 kg

DRUGS (1)
  1. LITHIUM      300 MF [Suspect]
     Dosage: 900 MG   QD   PO
     Route: 048

REACTIONS (1)
  - ANTIPSYCHOTIC DRUG LEVEL INCREASED [None]
